FAERS Safety Report 7190203-8 (Version None)
Quarter: 2010Q4

REPORT INFORMATION
  Report Type: 
  Country: None (occurrence: None)
  Receive Date: 20101223
  Receipt Date: 20101216
  Transmission Date: 20110411
  Serious: Yes (Hospitalization)
  Sender: FDA-Public Use
  Company Number: JP-NOVOPROD-320289

PATIENT
  Age: 67 Year
  Sex: Male
  Weight: 48 kg

DRUGS (4)
  1. VICTOZA [Suspect]
     Indication: TYPE 2 DIABETES MELLITUS
     Dosage: 0.9 MG, QD
     Route: 058
     Dates: start: 20100727
  2. LOSARTAN POTASSIUM AND HYDROCHLOROTHIAZIDE [Concomitant]
     Dosage: 1 TAB, QD
     Route: 048
     Dates: start: 20080201
  3. PANCREAZE [Concomitant]
     Dosage: 2 TAB, QD
     Route: 048
     Dates: start: 20091001
  4. COLONEL [Concomitant]
     Dosage: 2 TAB, QD
     Route: 048
     Dates: start: 20100901

REACTIONS (1)
  - PANCREATIC CARCINOMA [None]
